FAERS Safety Report 21150918 (Version 3)
Quarter: 2022Q3

REPORT INFORMATION
  Report Type: Report from Study
  Country: US (occurrence: US)
  Receive Date: 20220729
  Receipt Date: 20220909
  Transmission Date: 20221027
  Serious: Yes (Other)
  Sender: FDA-Public Use
  Company Number: US-BRISTOL-MYERS SQUIBB COMPANY-2022-079029

PATIENT
  Age: 76 Year
  Sex: Female
  Weight: 45.36 kg

DRUGS (4)
  1. REVLIMID [Suspect]
     Active Substance: LENALIDOMIDE
     Indication: Plasma cell myeloma
     Dosage: DAY 1-14 EVERY 21 DAYS
     Route: 048
     Dates: start: 20190305, end: 202207
  2. REVLIMID [Suspect]
     Active Substance: LENALIDOMIDE
     Route: 048
     Dates: start: 20220720
  3. REVLIMID [Suspect]
     Active Substance: LENALIDOMIDE
     Route: 065
  4. REVLIMID [Suspect]
     Active Substance: LENALIDOMIDE
     Dosage: DAILY 14 DAYS. STRENGTH: 5 MG CAPS-28/BTL. ?DAYS 1 TO 14 EVERY 21 DAYS
     Route: 048
     Dates: start: 20190305

REACTIONS (4)
  - COVID-19 [Unknown]
  - Laboratory test abnormal [Unknown]
  - Off label use [Unknown]
  - White blood cell count decreased [Unknown]

NARRATIVE: CASE EVENT DATE: 20190305
